FAERS Safety Report 20624690 (Version 2)
Quarter: 2022Q3

REPORT INFORMATION
  Report Type: Spontaneous
  Country: US (occurrence: None)
  Receive Date: 20220323
  Receipt Date: 20220902
  Transmission Date: 20221026
  Serious: Yes (Death, Hospitalization)
  Sender: FDA-Public Use
  Company Number: US-MDD US Operations-MDD202203-000464

PATIENT
  Age: 66 Year
  Sex: Male

DRUGS (2)
  1. APOKYN [Suspect]
     Active Substance: APOMORPHINE HYDROCHLORIDE
     Indication: Parkinson^s disease
     Route: 058
     Dates: start: 201602
  2. APOKYN [Suspect]
     Active Substance: APOMORPHINE HYDROCHLORIDE
     Route: 058
     Dates: start: 201602

REACTIONS (5)
  - Death [Fatal]
  - Dementia [Unknown]
  - Parkinson^s disease psychosis [Unknown]
  - Pneumonia aspiration [Unknown]
  - Fall [Unknown]

NARRATIVE: CASE EVENT DATE: 20220303
